FAERS Safety Report 4995443-1 (Version None)
Quarter: 2006Q1

REPORT INFORMATION
  Report Type: 
  Country: None (occurrence: None)
  Receive Date: 20060315
  Receipt Date: 20051202
  Transmission Date: 20060701
  Serious: Yes (Other)
  Sender: FDA-Public Use
  Company Number: 427441

PATIENT
  Age: 60 Year
  Sex: Female

DRUGS (1)
  1. BONIVA [Suspect]
     Indication: OSTEOPOROSIS
     Dosage: ORAL
     Route: 048
     Dates: start: 20051129, end: 20051129

REACTIONS (5)
  - BACK PAIN [None]
  - CHEST PAIN [None]
  - JOINT SWELLING [None]
  - PYREXIA [None]
  - VISION BLURRED [None]
